FAERS Safety Report 24775041 (Version 1)
Quarter: 2024Q4

REPORT INFORMATION
  Report Type: Report from Study
  Country: US (occurrence: US)
  Receive Date: 20241226
  Receipt Date: 20241226
  Transmission Date: 20250115
  Serious: Yes (Hospitalization, Other)
  Sender: ABBVIE
  Company Number: US-ABBVIE-6062184

PATIENT
  Age: 62 Year
  Sex: Male

DRUGS (1)
  1. RINVOQ [Suspect]
     Active Substance: UPADACITINIB
     Indication: Dermatitis atopic
     Route: 048
     Dates: start: 20231130, end: 202411

REACTIONS (7)
  - Sepsis [Unknown]
  - Hospitalisation [Unknown]
  - Cough [Unknown]
  - Dyspnoea [Unknown]
  - Pulmonary mass [Unknown]
  - Pneumonia [Unknown]
  - Chest pain [Unknown]

NARRATIVE: CASE EVENT DATE: 20240101
